FAERS Safety Report 5330922-9 (Version None)
Quarter: 2007Q2

REPORT INFORMATION
  Report Type: 
  Country: None (occurrence: None)
  Receive Date: 20070522
  Receipt Date: 20070511
  Transmission Date: 20071010
  Serious: Yes (Hospitalization)
  Sender: FDA-Public Use
  Company Number: CZ-ELI_LILLY_AND_COMPANY-CZ200702003848

PATIENT
  Age: 19 Year
  Sex: Male

DRUGS (4)
  1. ZYPREXA [Suspect]
     Indication: SCHIZOPHRENIA
     Dosage: 10 MG, DAILY (1/D)
     Route: 048
     Dates: start: 20041109, end: 20070101
  2. ZYPREXA [Suspect]
     Dosage: 10 MG, DAILY (1/D)
     Route: 048
     Dates: start: 20070401
  3. HALOPERIDOL [Concomitant]
     Indication: SCHIZOPHRENIA
     Dosage: 9 MG, UNKNOWN
     Route: 048
     Dates: start: 20061101
  4. RIVOTRIL [Concomitant]
     Indication: EPILEPSY
     Dosage: 1 MG, UNKNOWN
     Route: 048
     Dates: start: 20061101

REACTIONS (2)
  - SCHIZOPHRENIA [None]
  - TONGUE DISCOLOURATION [None]
